FAERS Safety Report 7347228-9 (Version None)
Quarter: 2011Q1

REPORT INFORMATION
  Report Type: 
  Country: None (occurrence: None)
  Receive Date: 20110303
  Receipt Date: 20110222
  Transmission Date: 20110831
  Serious: Yes (Death)
  Sender: FDA-Public Use
  Company Number: DKLU1068578

PATIENT
  Age: 4 Year
  Sex: Female

DRUGS (4)
  1. SABRIL [Suspect]
     Indication: PRODUCT USED FOR UNKNOWN INDICATION
     Dosage: 400 MG MILLIGRAM(S), 2 IN 1 D
  2. VITAMIN B (VITAMIN B NOS) [Concomitant]
  3. COENYME Q (UBIDECARENONE) [Concomitant]
  4. ASCORBIC ACID [Concomitant]

REACTIONS (1)
  - DEATH [None]
